FAERS Safety Report 20302611 (Version 4)
Quarter: 2024Q2

REPORT INFORMATION
  Report Type: Report from Study
  Country: US (occurrence: US)
  Receive Date: 20220106
  Receipt Date: 20240412
  Transmission Date: 20240716
  Serious: Yes (Death, Hospitalization, Other)
  Sender: FDA-Public Use
  Company Number: US-ACADIA PHARMACEUTICALS INC.-ACA-2021-PIM-004507

PATIENT
  Age: 97 Year
  Sex: Female

DRUGS (19)
  1. NUPLAZID [Suspect]
     Active Substance: PIMAVANSERIN TARTRATE
     Indication: Parkinson^s disease
     Dosage: 34 MILLIGRAM, QD
     Route: 048
     Dates: start: 201910
  2. TYLENOL [Concomitant]
     Active Substance: ACETAMINOPHEN
     Indication: Back pain
     Dosage: 325 MG, 1/2 CAPSULE EVERY 6 HOUR PRN
  3. prune juice [Concomitant]
     Indication: Constipation
  4. STOOL SOFTENER (DOCUSATE) [Concomitant]
     Active Substance: DOCUSATE
     Indication: Constipation
  5. GABAPENTIN [Concomitant]
     Active Substance: GABAPENTIN
     Indication: Hallucination
     Dosage: 400 MG TID
     Dates: end: 202005
  6. GABAPENTIN [Concomitant]
     Active Substance: GABAPENTIN
     Indication: Sleep disorder
     Dosage: 200 MILLIGRAM, QD BEDTIME (2 CAPSULES)
     Route: 048
  7. GABAPENTIN [Concomitant]
     Active Substance: GABAPENTIN
     Indication: Pain
  8. AZILECT [Concomitant]
     Active Substance: RASAGILINE MESYLATE
     Dosage: 1 MILLIGRAM, QD
     Route: 048
  9. SINEMET [Concomitant]
     Active Substance: CARBIDOPA\LEVODOPA
     Dosage: 25-100 MG, 0.5 TAB 3 TIMES PER DAY - 10 AM, 4 PM, 9 PM
  10. ASPIRIN [Concomitant]
     Active Substance: ASPIRIN
     Dosage: 81 MILLIGRAM EVERY OTHER DAY
  11. ATORVASTATIN [Concomitant]
     Active Substance: ATORVASTATIN
     Dosage: 10 MILLIGRAM, QD
     Route: 048
  12. LEVOTHYROXINE [Concomitant]
     Active Substance: LEVOTHYROXINE\LEVOTHYROXINE SODIUM
     Dosage: 25 MCG QD
     Route: 048
  13. CALCITRIOL [Concomitant]
     Active Substance: CALCITRIOL
     Dosage: 0.25 MCG QD
     Route: 048
  14. CORTISONE [Concomitant]
     Active Substance: CORTISONE
     Indication: Arthritis
     Dosage: 1 PRN INJECTIONS TO KNEES
  15. CORTISONE [Concomitant]
     Active Substance: CORTISONE
     Indication: Pain
  16. CARBIDOPA\LEVODOPA [Concomitant]
     Active Substance: CARBIDOPA\LEVODOPA
     Dosage: 25-100MG 1/2 TAB 3 TIMES PER DAY
     Route: 048
  17. AMLODIPINE [Concomitant]
     Active Substance: AMLODIPINE BESYLATE
     Indication: Blood pressure systolic increased
     Dosage: 5 MILLIGRAM, QD
     Route: 048
  18. UNSPECIFIED INGREDIENT [Concomitant]
     Active Substance: UNSPECIFIED INGREDIENT
     Indication: Impaired healing
     Route: 061
  19. BUMETANIDE [Concomitant]
     Active Substance: BUMETANIDE
     Indication: Peripheral swelling
     Dosage: 1 MILLIGRAM, QD

REACTIONS (3)
  - Death [Fatal]
  - Renal impairment [Unknown]
  - Myocardial infarction [Unknown]

NARRATIVE: CASE EVENT DATE: 20211223
